FAERS Safety Report 17572082 (Version 1)
Quarter: 2020Q1

REPORT INFORMATION
  Report Type: Spontaneous
  Country: BR (occurrence: BR)
  Receive Date: 20200323
  Receipt Date: 20200323
  Transmission Date: 20200409
  Serious: Yes (Other)
  Sender: FDA-Public Use
  Company Number: BR-NOVOPROD-718634

PATIENT
  Sex: Female
  Weight: 68 kg

DRUGS (5)
  1. LEVOTHYROXINE SODIUM. [Concomitant]
     Active Substance: LEVOTHYROXINE SODIUM
     Indication: HYPOTHYROIDISM
     Dosage: 1 TABLET IN FAST (6.25 MG)
     Route: 065
  2. LOSARTANA POTASSICA [Concomitant]
     Active Substance: LOSARTAN
     Indication: HYPERTENSION
     Dosage: 50 MG
  3. NOVOLIN N [Suspect]
     Active Substance: INSULIN HUMAN
     Indication: TYPE 2 DIABETES MELLITUS
     Dosage: UNK
     Route: 065
     Dates: end: 20200307
  4. METFORMINE HCL [Concomitant]
     Active Substance: METFORMIN HYDROCHLORIDE
     Indication: TYPE 2 DIABETES MELLITUS
     Dosage: 1000 MG
     Route: 065
  5. PREGABALINE [Concomitant]
     Active Substance: PREGABALIN
     Indication: RASH
     Dosage: 1 TABLET (75 MG) EACH 12 HOURS
     Route: 065

REACTIONS (2)
  - Pneumonia [Recovered/Resolved]
  - Hyperglycaemia [Not Recovered/Not Resolved]
